FAERS Safety Report 14099662 (Version 2)
Quarter: 2018Q1

REPORT INFORMATION
  Report Type: Report from Study
  Country: CO (occurrence: CO)
  Receive Date: 20171017
  Receipt Date: 20180129
  Transmission Date: 20180508
  Serious: Yes (Hospitalization, Other)
  Sender: FDA-Public Use
  Company Number: CO-ASTELLAS-2017US041732

PATIENT
  Age: 66 Year
  Sex: Male

DRUGS (1)
  1. ENZALUTAMIDE [Suspect]
     Active Substance: ENZALUTAMIDE
     Indication: HORMONE-REFRACTORY PROSTATE CANCER
     Route: 048
     Dates: start: 20170622

REACTIONS (4)
  - Pain [Not Recovered/Not Resolved]
  - Circumstance or information capable of leading to medication error [Unknown]
  - Mobility decreased [Not Recovered/Not Resolved]
  - Spinal operation [Recovering/Resolving]

NARRATIVE: CASE EVENT DATE: 20170827
